FAERS Safety Report 8848591 (Version 2)
Quarter: 2015Q3

REPORT INFORMATION
  Report Type: Report from Study
  Country: US (occurrence: US)
  Receive Date: 20121018
  Receipt Date: 20150824
  Transmission Date: 20151125
  Serious: Yes (Hospitalization)
  Sender: FDA-Public Use
  Company Number: US-ROCHE-1143188

PATIENT
  Age: 9 Year
  Sex: Female
  Weight: 34.4 kg

DRUGS (20)
  1. NUTROPIN AQ [Suspect]
     Active Substance: SOMATROPIN
     Dosage: 5 MG/ML
     Route: 058
  2. ADDERALL [Concomitant]
     Active Substance: AMPHETAMINE ASPARTATE\AMPHETAMINE SULFATE\DEXTROAMPHETAMINE SACCHARATE\DEXTROAMPHETAMINE SULFATE
  3. CLONIDINE. [Concomitant]
     Active Substance: CLONIDINE
  4. NUTROPIN AQ [Suspect]
     Active Substance: SOMATROPIN
     Dosage: 5 MG/ML
     Route: 058
  5. NUTROPIN AQ [Suspect]
     Active Substance: SOMATROPIN
     Route: 058
  6. NUTROPIN AQ [Suspect]
     Active Substance: SOMATROPIN
     Route: 058
  7. PAXIL (UNITED STATES) [Concomitant]
  8. NUTROPIN AQ [Suspect]
     Active Substance: SOMATROPIN
     Route: 058
  9. NUTROPIN AQ [Suspect]
     Active Substance: SOMATROPIN
     Indication: GROWTH HORMONE DEFICIENCY
     Route: 058
     Dates: start: 19960830
  10. NUTROPIN AQ [Suspect]
     Active Substance: SOMATROPIN
     Route: 058
  11. NUTROPIN AQ [Suspect]
     Active Substance: SOMATROPIN
     Route: 058
  12. NUTROPIN AQ [Suspect]
     Active Substance: SOMATROPIN
     Route: 058
  13. NUTROPIN AQ [Suspect]
     Active Substance: SOMATROPIN
     Route: 058
  14. NUTROPIN AQ [Suspect]
     Active Substance: SOMATROPIN
     Route: 058
  15. DITROPAN [Concomitant]
     Active Substance: OXYBUTYNIN CHLORIDE
  16. RITALIN [Concomitant]
     Active Substance: METHYLPHENIDATE HYDROCHLORIDE
     Indication: PSYCHOMOTOR HYPERACTIVITY
  17. NUTROPIN AQ [Suspect]
     Active Substance: SOMATROPIN
     Indication: DWARFISM
     Dosage: DOSE GIVEN ON /DEC/1996
     Route: 058
  18. NUTROPIN AQ [Suspect]
     Active Substance: SOMATROPIN
     Dosage: 5 MG/ML
     Route: 058
  19. NUTROPIN AQ [Suspect]
     Active Substance: SOMATROPIN
     Dosage: 5 MG/ML
     Route: 058
  20. NUTROPIN AQ [Suspect]
     Active Substance: SOMATROPIN
     Route: 058

REACTIONS (14)
  - Pain in extremity [Unknown]
  - Pyelonephritis [Unknown]
  - Scoliosis [Unknown]
  - Otitis media acute [Unknown]
  - Aggression [Unknown]
  - Incontinence [Unknown]
  - Spinal osteoarthritis [Unknown]
  - Gastroenteritis viral [Unknown]
  - Attention deficit/hyperactivity disorder [Unknown]
  - Growth retardation [Unknown]
  - Urinary tract infection [Unknown]
  - Headache [Unknown]
  - Nocturia [Unknown]
  - Cardiac murmur [Unknown]

NARRATIVE: CASE EVENT DATE: 199612
